FAERS Safety Report 21082747 (Version 7)
Quarter: 2025Q3

REPORT INFORMATION
  Report Type: Report from Study
  Country: US (occurrence: US)
  Receive Date: 20220714
  Receipt Date: 20250715
  Transmission Date: 20251021
  Serious: Yes (Other)
  Sender: NOVARTIS
  Company Number: US-NOVARTISPH-NVSC2022US156761

PATIENT
  Sex: Male

DRUGS (1)
  1. TABRECTA [Suspect]
     Active Substance: CAPMATINIB
     Indication: Lung neoplasm malignant
     Dosage: 400 MG, BID
     Route: 048
     Dates: start: 20220623

REACTIONS (25)
  - Thrombosis [Unknown]
  - Peripheral swelling [Not Recovered/Not Resolved]
  - Lung neoplasm malignant [Unknown]
  - Malignant neoplasm progression [Unknown]
  - Metastases to bone [Unknown]
  - Metastases to adrenals [Unknown]
  - Rash [Unknown]
  - Arthralgia [Unknown]
  - Rib fracture [Unknown]
  - Influenza like illness [Unknown]
  - Chest discomfort [Unknown]
  - Discomfort [Unknown]
  - Oedema genital [Unknown]
  - Haemoptysis [Recovering/Resolving]
  - Insomnia [Unknown]
  - Wheezing [Unknown]
  - Anxiety [Unknown]
  - Nasal congestion [Unknown]
  - Fatigue [Recovering/Resolving]
  - Dizziness [Unknown]
  - Cough [Unknown]
  - Chest pain [Unknown]
  - Dyspnoea [Unknown]
  - Asthenia [Unknown]
  - Drug ineffective [Unknown]
